FAERS Safety Report 16804634 (Version 1)
Quarter: 2019Q3

REPORT INFORMATION
  Report Type: Report from Study
  Country: None (occurrence: AR)
  Receive Date: 20190913
  Receipt Date: 20190913
  Transmission Date: 20191005
  Serious: Yes (Other)
  Sender: FDA-Public Use
  Company Number: AR-ABBVIE-19K-007-2923422-00

PATIENT
  Age: 62 Year
  Sex: Female

DRUGS (1)
  1. HUMIRA [Suspect]
     Active Substance: ADALIMUMAB
     Indication: CROHN^S DISEASE
     Route: 058
     Dates: start: 20170922

REACTIONS (3)
  - Dacryostenosis acquired [Not Recovered/Not Resolved]
  - Tearfulness [Unknown]
  - Oral infection [Recovered/Resolved]

NARRATIVE: CASE EVENT DATE: 20190301
